FAERS Safety Report 10381463 (Version 1)
Quarter: 2014Q1

REPORT INFORMATION
  Report Type: Spontaneous
  Country: US (occurrence: None)
  Receive Date: 20140306
  Receipt Date: 20140306
  Transmission Date: 20141002
  Serious: Yes (Hospitalization)
  Sender: FDA-Public Use
  Company Number: 163-21880-13013965

PATIENT
  Age: 69 Year
  Sex: Female

DRUGS (9)
  1. REVLIMID (LENALIDOMIDE) (25 MILLIGRAM, CAPSULES) [Suspect]
     Indication: PLASMA CELL MYELOMA
     Dosage: 21 IN 21 D
     Route: 048
     Dates: start: 20130103, end: 201301
  2. AMANTADINE HCL (AMANTADINE HYDROCHLORIDE) [Concomitant]
  3. AMLODIPINE BESYLATE (AMLODIPINE BESILATE) [Concomitant]
  4. ATORVASTATIN CALCIUM (ATORVASTATIN CALCIUM) [Concomitant]
  5. DEXAMETHASONE [Concomitant]
  6. LISINOPRIL [Concomitant]
  7. METOPROLOL TARTRATE [Concomitant]
  8. SYNTHROID (LEVOTHYROXINE SODIUM) [Concomitant]
  9. TYLENOL (PARACETAMOL) [Concomitant]

REACTIONS (3)
  - Dysarthria [None]
  - Hypoaesthesia [None]
  - Diarrhoea [None]
